FAERS Safety Report 7824092-2 (Version None)
Quarter: 2011Q4

REPORT INFORMATION
  Report Type: 
  Country: None (occurrence: None)
  Receive Date: 20111017
  Receipt Date: 20111003
  Transmission Date: 20120403
  Serious: Yes (Disabling)
  Sender: FDA-Public Use
  Company Number: OSCN-NO-1006S-0166

PATIENT
  Age: 44 Year
  Sex: Male
  Weight: 93 kg

DRUGS (1)
  1. OMNISCAN [Suspect]
     Indication: TRANSPLANT EVALUATION
     Dosage: SINGLE DOSE, INTRAVENOUS
     Route: 042
     Dates: start: 20030205, end: 20030205

REACTIONS (13)
  - ARTHRALGIA [None]
  - JOINT SWELLING [None]
  - SENSORY DISTURBANCE [None]
  - PATHOGEN RESISTANCE [None]
  - SKIN DISORDER [None]
  - MOTOR DYSFUNCTION [None]
  - HAEMODIALYSIS [None]
  - NEPHROGENIC SYSTEMIC FIBROSIS [None]
  - LEG AMPUTATION [None]
  - STAPHYLOCOCCAL INFECTION [None]
  - MOBILITY DECREASED [None]
  - DEFORMITY [None]
  - MUSCULOSKELETAL STIFFNESS [None]
